FAERS Safety Report 4336380-5 (Version None)
Quarter: 2004Q2

REPORT INFORMATION
  Report Type: 
  Country: None (occurrence: None)
  Receive Date: 20040412
  Receipt Date: 20031121
  Transmission Date: 20050107
  Serious: Yes (Other)
  Sender: FDA-Public Use
  Company Number: PHNU2003DE04128

PATIENT
  Age: 29 Year
  Sex: Male

DRUGS (1)
  1. LAMISIL [Suspect]
     Indication: NAIL TINEA
     Dosage: 1 DF, QD
     Route: 048
     Dates: start: 20030909, end: 20031214

REACTIONS (2)
  - DIABETES MELLITUS INSULIN-DEPENDENT [None]
  - EXANTHEM [None]
